FAERS Safety Report 9073192 (Version 1)
Quarter: 2013Q1

REPORT INFORMATION
  Report Type: Report from Study
  Country: US (occurrence: US)
  Receive Date: 20130129
  Receipt Date: 20130129
  Transmission Date: 20140127
  Serious: No
  Sender: FDA-Public Use
  Company Number: US-ABBOTT-12P-163-0943037-00

PATIENT
  Sex: 0

DRUGS (14)
  1. HUMIRA 40 MG/0.8 ML PEN [Suspect]
     Indication: PSORIASIS
     Dates: start: 20120324
  2. AMLODIPINE BESYLATE [Concomitant]
     Indication: HYPERTENSION
     Dosage: 10MG DAILY
     Route: 048
  3. TOPROL [Concomitant]
     Indication: HYPERTENSION
     Route: 048
  4. AMITRIPTYLINE HCL [Concomitant]
     Indication: VASCULAR HEADACHE
     Route: 048
  5. NEURONTIN [Concomitant]
     Indication: HYPOAESTHESIA
     Route: 048
  6. NEURONTIN [Concomitant]
     Indication: PAIN IN EXTREMITY
  7. NEURONTIN [Concomitant]
     Indication: PAIN IN EXTREMITY
  8. LISINOPRIL [Concomitant]
     Indication: HYPERTENSION
     Route: 048
  9. TRAMADOL [Concomitant]
     Indication: PAIN
     Dosage: 2 TABLETS DAILY
     Route: 048
  10. HYDROCHLOROTHIAZIDE [Concomitant]
     Indication: HYPERTENSION
     Route: 048
  11. NEXIUM [Concomitant]
     Indication: GASTROOESOPHAGEAL REFLUX DISEASE
     Route: 048
  12. SPIRIVA [Concomitant]
     Indication: CHRONIC OBSTRUCTIVE PULMONARY DISEASE
     Dosage: 18MCG DAILY
     Route: 048
  13. PROVENTIL HFA [Concomitant]
     Indication: CHRONIC OBSTRUCTIVE PULMONARY DISEASE
     Route: 055
  14. SYMBICORT [Concomitant]
     Indication: CHRONIC OBSTRUCTIVE PULMONARY DISEASE
     Dosage: 2 PUFFS TWICE DAILY IN AM AND PM

REACTIONS (5)
  - Fatigue [Not Recovered/Not Resolved]
  - Hypersomnia [Not Recovered/Not Resolved]
  - Asthenia [Not Recovered/Not Resolved]
  - Dizziness [Not Recovered/Not Resolved]
  - Nausea [Not Recovered/Not Resolved]
